FAERS Safety Report 5632492-4 (Version None)
Quarter: 2008Q1

REPORT INFORMATION
  Report Type: 
  Country: None (occurrence: None)
  Receive Date: 20080131
  Receipt Date: 20071119
  Transmission Date: 20080703
  Serious: No
  Sender: FDA-Public Use
  Company Number: 163-21880-07101293

PATIENT
  Age: 53 Year
  Sex: Female
  Weight: 60.782 kg

DRUGS (13)
  1. REVLIMID [Suspect]
     Indication: MULTIPLE MYELOMA
     Dosage: 25, 5-25 MG, 1 IN 1 D, ORAL
     Route: 048
     Dates: start: 20070222, end: 20070801
  2. REVLIMID [Suspect]
     Indication: MULTIPLE MYELOMA
     Dosage: 25, 5-25 MG, 1 IN 1 D, ORAL
     Route: 048
     Dates: start: 20070828
  3. DECADRON [Concomitant]
  4. BENTYL [Concomitant]
  5. CITALOPRAM HYDROBROMIDE [Concomitant]
  6. ASPIRIN [Concomitant]
  7. OXYCODONE HCL [Concomitant]
  8. MORPHINE SULFATE [Concomitant]
  9. LOTREL [Concomitant]
  10. TIGAN [Concomitant]
  11. METOCLOPRAMIDE [Concomitant]
  12. LIBRAX [Concomitant]
  13. CLORAZEPATE DIPOTASSIUM [Concomitant]

REACTIONS (7)
  - ANOREXIA [None]
  - ANXIETY [None]
  - BLINDNESS [None]
  - DIARRHOEA [None]
  - DIZZINESS [None]
  - NAUSEA [None]
  - NECK PAIN [None]
